FAERS Safety Report 15933152 (Version 1)
Quarter: 2019Q1

REPORT INFORMATION
  Report Type: Spontaneous
  Country: US (occurrence: US)
  Receive Date: 20190207
  Receipt Date: 20190207
  Transmission Date: 20190417
  Serious: No
  Sender: FDA-Public Use
  Company Number: US-GLAXOSMITHKLINE-US2019019064

PATIENT
  Age: 66 Year
  Sex: Female

DRUGS (2)
  1. ASPIRIN. [Suspect]
     Active Substance: ASPIRIN
     Indication: INTRACRANIAL ANEURYSM
     Dosage: UNK
  2. LAMOTRIGINE. [Suspect]
     Active Substance: LAMOTRIGINE
     Indication: BIPOLAR DISORDER
     Dosage: 25 MG, UNK
     Route: 065

REACTIONS (2)
  - Fatigue [Unknown]
  - Erythema [Unknown]

NARRATIVE: CASE EVENT DATE: 20190201
